FAERS Safety Report 8436593-7 (Version None)
Quarter: 2012Q2

REPORT INFORMATION
  Report Type: 
  Country: None (occurrence: None)
  Receive Date: 20120323
  Receipt Date: 20110729
  Transmission Date: 20120825
  Serious: Yes (Hospitalization)
  Sender: FDA-Public Use
  Company Number: 163-21880-11063179

PATIENT
  Age: 94 Year
  Sex: Female

DRUGS (9)
  1. VYTORIN [Concomitant]
  2. AMBIEN [Concomitant]
  3. LENALIDOMIDE [Suspect]
     Indication: MYELODYSPLASTIC SYNDROME
     Dosage: 5 MG, Q4D, PO
     Route: 048
     Dates: start: 20110608, end: 20110614
  4. ARICEPT [Concomitant]
  5. SODIUM BICARBONATE IN PLASTIC CONTAINER [Concomitant]
  6. HYDRALAZINE HCL (HYRLAZINE HYDROCHLORIDE) [Concomitant]
  7. SYNTHROID [Concomitant]
  8. NORVASC [Concomitant]
  9. COREG CR (CARVEDILOL) [Concomitant]

REACTIONS (2)
  - DIARRHOEA [None]
  - ANAEMIA [None]
